FAERS Safety Report 9335010 (Version 1)
Quarter: 2013Q2

REPORT INFORMATION
  Report Type: Spontaneous
  Country: AU (occurrence: AU)
  Receive Date: 20130606
  Receipt Date: 20130606
  Transmission Date: 20140414
  Serious: Yes (Other)
  Sender: FDA-Public Use
  Company Number: AU-ASTRAZENECA-2013SE37935

PATIENT
  Age: 50 Year
  Sex: Female

DRUGS (6)
  1. TENORMIN [Suspect]
     Indication: HYPERTENSION
     Route: 065
     Dates: start: 2008
  2. GALVUS MET [Suspect]
     Dosage: 1000/50 MG, 1 DF DAILY
     Route: 048
     Dates: start: 20130129, end: 201302
  3. EXFORGE [Suspect]
     Dosage: 160/10 MG
  4. LIPITOR [Suspect]
     Dosage: 20 MG
  5. JANUMET [Suspect]
     Dosage: 1000/50
  6. NORVASC [Concomitant]

REACTIONS (2)
  - Renal failure acute [Not Recovered/Not Resolved]
  - Blood creatinine increased [Not Recovered/Not Resolved]
